FAERS Safety Report 9445846 (Version 2)
Quarter: 2013Q4

REPORT INFORMATION
  Report Type: Spontaneous
  Country: IE (occurrence: IE)
  Receive Date: 20130807
  Receipt Date: 20131122
  Transmission Date: 20140711
  Serious: Yes (Other)
  Sender: FDA-Public Use
  Company Number: IE-BRISTOL-MYERS SQUIBB COMPANY-19163567

PATIENT
  Age: 14 Year
  Sex: Female

DRUGS (6)
  1. ABILIFY TABS [Suspect]
     Indication: MAJOR DEPRESSION
     Dosage: DOSE:5MG:PRN:/D+15MG IN EVE.(26JL13)2.5MG(2/1/D)TAB?RED:12.5MG/D(9AG13)(26JL13-2AG13)(2-9AG13):15MG
     Route: 048
     Dates: start: 20130726
  2. OLANZAPINE [Suspect]
     Indication: MAJOR DEPRESSION
  3. QUETIAPINE [Suspect]
     Indication: MAJOR DEPRESSION
  4. VENLAFAXINE HCL [Concomitant]
     Indication: MAJOR DEPRESSION
     Dosage: VENLAFAXINE XL
  5. PROCYCLIDINE [Concomitant]
     Indication: MAJOR DEPRESSION
     Dosage: TABS?REDUCED TO 2.5MG:BID
  6. BENZODIAZEPINE [Concomitant]
     Dosage: 1DF:0.5-4MG
     Dates: start: 20130325, end: 20130809

REACTIONS (6)
  - Extrapyramidal disorder [Recovering/Resolving]
  - Akathisia [Not Recovered/Not Resolved]
  - Urinary retention [Recovered/Resolved]
  - Constipation [Recovered/Resolved]
  - Agitation [Unknown]
  - Off label use [Unknown]
